FAERS Safety Report 7296792-7 (Version None)
Quarter: 2011Q1

REPORT INFORMATION
  Report Type: 
  Country: None (occurrence: None)
  Receive Date: 20110216
  Receipt Date: 20110207
  Transmission Date: 20110831
  Serious: Yes (Other)
  Sender: FDA-Public Use
  Company Number: B0699631A

PATIENT
  Sex: Female

DRUGS (6)
  1. BONIVA [Concomitant]
  2. CHOLECALCIFEROL [Concomitant]
  3. MEDROL [Concomitant]
  4. ATORVASTATIN [Concomitant]
  5. HYZAAR [Concomitant]
  6. REVOLADE [Suspect]
     Dosage: 25MG PER DAY
     Route: 048
     Dates: start: 20110119, end: 20110120

REACTIONS (4)
  - VERTIGO [None]
  - POLYURIA [None]
  - NAUSEA [None]
  - HYPERTENSION [None]
